FAERS Safety Report 4413486-3 (Version None)
Quarter: 2004Q3

REPORT INFORMATION
  Report Type: 
  Country: None (occurrence: None)
  Receive Date: 20040728
  Receipt Date: 20040714
  Transmission Date: 20050211
  Serious: Yes (Hospitalization, Other)
  Sender: FDA-Public Use
  Company Number: USA040772058

PATIENT
  Age: 82 Year
  Sex: Female
  Weight: 56 kg

DRUGS (3)
  1. FORTEO [Suspect]
     Dosage: 20 UG DAY
     Dates: start: 20040403, end: 20040713
  2. LIPITOR [Concomitant]
  3. HYDROCHLOROTHIAZIDE [Concomitant]

REACTIONS (8)
  - ABDOMINAL HERNIA [None]
  - CHOLELITHIASIS [None]
  - DYSGEUSIA [None]
  - GALLBLADDER OPERATION [None]
  - OESOPHAGEAL SPASM [None]
  - PHARMACEUTICAL PRODUCT COMPLAINT [None]
  - RENAL CYST [None]
  - WEIGHT DECREASED [None]
